FAERS Safety Report 24342867 (Version 1)
Quarter: 2024Q3

REPORT INFORMATION
  Report Type: Spontaneous
  Country: US (occurrence: US)
  Receive Date: 20240920
  Receipt Date: 20240920
  Transmission Date: 20241017
  Serious: Yes (Other)
  Sender: ORGANON
  Company Number: US-MLMSERVICE-20240911-PI181883-00080-2

PATIENT
  Age: 73 Year
  Sex: Male
  Weight: 72.1 kg

DRUGS (4)
  1. SINEMET [Suspect]
     Active Substance: CARBIDOPA\LEVODOPA
     Indication: Parkinson^s disease
     Dosage: LEVODOPA-CARBIDOPA (SINEMET IR) 100-25 MG FOUR TIMES A DAY
  2. SINEMET [Suspect]
     Active Substance: CARBIDOPA\LEVODOPA
     Dosage: LEVODOPA-CARBIDOPA (SINEMET IR) 100-25 MG THREE TIMES A DAY
  3. STALEVO [Suspect]
     Active Substance: CARBIDOPA\ENTACAPONE\LEVODOPA
     Indication: Parkinson^s disease
     Dosage: CARBIDOPA-LEVODOPA-ENTACAPONE (STALEVO) 37.5-150-200 MG FOUR TIMES A DAY
  4. ROPINIROLE [Concomitant]
     Active Substance: ROPINIROLE
     Indication: Parkinson^s disease
     Dosage: 3 MG TWICE DAILY

REACTIONS (2)
  - Hallucination [Recovered/Resolved]
  - Hypersexuality [Recovered/Resolved]
